FAERS Safety Report 4298113-0 (Version None)
Quarter: 2004Q1

REPORT INFORMATION
  Report Type: 
  Country: None (occurrence: None)
  Receive Date: 20040218
  Receipt Date: 20020102
  Transmission Date: 20041129
  Serious: Yes (Other)
  Sender: FDA-Public Use
  Company Number: US-BRISTOL-MYERS SQUIBB COMPANY-11853728

PATIENT
  Sex: Female

DRUGS (14)
  1. STADOL [Suspect]
  2. STADOL [Suspect]
     Route: 045
  3. BUSPAR [Concomitant]
  4. TRAZODONE HCL [Concomitant]
  5. CELEXA [Concomitant]
  6. PHENERGAN [Concomitant]
  7. BUTALBITAL + ACETAMINOPHEN [Concomitant]
  8. ALPRAZOLAM [Concomitant]
  9. PROMETHAZINE [Concomitant]
  10. AMITRIPTYLINE [Concomitant]
  11. LORAZEPAM [Concomitant]
  12. PERPHENAZINE [Concomitant]
  13. THIORIDAZINE HCL [Concomitant]
  14. HYDROXYZINE [Concomitant]

REACTIONS (1)
  - DEPENDENCE [None]
